FAERS Safety Report 7421336-6 (Version None)
Quarter: 2011Q2

REPORT INFORMATION
  Report Type: 
  Country: None (occurrence: None)
  Receive Date: 20110418
  Receipt Date: 20110408
  Transmission Date: 20111010
  Serious: Yes (Hospitalization, Other)
  Sender: FDA-Public Use
  Company Number: US-ASTRAZENECA-2009SE18539

PATIENT
  Age: 74 Year
  Sex: Female

DRUGS (4)
  1. AMBIEN [Concomitant]
  2. ACCOLATE [Suspect]
     Route: 048
  3. SYMBICORT [Suspect]
     Route: 055
  4. CRESTOR [Suspect]
     Route: 048

REACTIONS (6)
  - CONTUSION [None]
  - LACERATION [None]
  - SOMNAMBULISM [None]
  - FALL [None]
  - JOINT INJURY [None]
  - ASTHMA [None]
